FAERS Safety Report 9963607 (Version 1)
Quarter: 2014Q1

REPORT INFORMATION
  Report Type: Report from Study
  Country: US (occurrence: US)
  Receive Date: 20140305
  Receipt Date: 20140305
  Transmission Date: 20141002
  Serious: No
  Sender: FDA-Public Use
  Company Number: US-ABBVIE-13P-163-1117381-00

PATIENT
  Age: 55 Year
  Sex: Female

DRUGS (12)
  1. HUMIRA [Suspect]
     Indication: RHEUMATOID ARTHRITIS
     Dates: start: 201304
  2. PREDNISONE [Concomitant]
     Indication: PRODUCT USED FOR UNKNOWN INDICATION
     Dosage: 10 MG DAILY
  3. PLAQUENIL [Concomitant]
     Indication: RHEUMATOID ARTHRITIS
     Dosage: 200 MG DAILY
  4. MORPHINE [Concomitant]
     Indication: PRODUCT USED FOR UNKNOWN INDICATION
     Dosage: 100 MG 1 TO 2 TABLETS
  5. DILAUDID [Concomitant]
     Indication: BACK PAIN
  6. DILAUDID [Concomitant]
     Indication: MUSCLE SPASMS
  7. ATIVAN [Concomitant]
     Indication: MUSCLE SPASMS
  8. ATIVAN [Concomitant]
     Indication: BACK PAIN
  9. CLONAZEPAM [Concomitant]
     Indication: BRAIN NEOPLASM
     Dosage: HASN^T USED IN LAST MONTH
  10. CLONAZEPAM [Concomitant]
     Indication: CONVULSION
  11. TPN [Concomitant]
     Indication: PRODUCT USED FOR UNKNOWN INDICATION
  12. UNKNOWN MEDICATIONS [Concomitant]
     Indication: PRODUCT USED FOR UNKNOWN INDICATION

REACTIONS (3)
  - Device malfunction [Recovering/Resolving]
  - Joint swelling [Recovering/Resolving]
  - Arthralgia [Recovering/Resolving]
